FAERS Safety Report 4376218-3 (Version None)
Quarter: 2004Q2

REPORT INFORMATION
  Report Type: 
  Country: None (occurrence: None)
  Receive Date: 20040607
  Receipt Date: 20040519
  Transmission Date: 20050107
  Serious: Yes (Other)
  Sender: FDA-Public Use
  Company Number: US-SHR-04-022047

PATIENT
  Sex: Female

DRUGS (1)
  1. CAMPATH [Suspect]
     Indication: CHRONIC LYMPHOCYTIC LEUKAEMIA
     Dosage: 3/10/30MG DOSE ESCALATION, SUBCUTANEOUS
     Route: 058
     Dates: start: 20040130, end: 20040223

REACTIONS (1)
  - CYTOMEGALOVIRUS INFECTION [None]
